FAERS Safety Report 8024339-6 (Version None)
Quarter: 2012Q1

REPORT INFORMATION
  Report Type: 
  Country: None (occurrence: None)
  Receive Date: 20120105
  Receipt Date: 20111228
  Transmission Date: 20120608
  Serious: Yes (Other)
  Sender: FDA-Public Use
  Company Number: PHEH2011US03356

PATIENT
  Sex: Male

DRUGS (13)
  1. EXJADE [Suspect]
     Dosage: 1250 MG, QD
     Route: 048
  2. ULORIC [Concomitant]
     Dosage: 40 MG, DAILY
  3. DANAZOL [Concomitant]
     Dosage: 200 MG, 3 TIMES A DAY
  4. PYRIDOXINE HCL [Concomitant]
     Dosage: 100 MG, TWICE A DAY
  5. ATENOLOL [Concomitant]
     Dosage: 25 MG, UNK
  6. ARANESP [Concomitant]
     Dosage: 500 UG, EVERY 2 WEEKS
     Dates: start: 20110316
  7. OMEGA-3 FATTY ACIDS [Concomitant]
     Dosage: 4 DF, 2 TO 4 DF PER DAY
  8. VITAMIN D [Concomitant]
     Dosage: 5000 U, UNK
  9. GABAPENTIN [Concomitant]
     Dosage: 300 MG, TWICE A DAY
  10. DOXEPIN [Concomitant]
     Dosage: 30 MG, UNK
  11. ASPIRIN [Concomitant]
     Dosage: 81 MG, UNK
  12. MULTI-VITAMIN [Concomitant]
     Dosage: UNK UKN, UNK
  13. THYROID TAB [Concomitant]
     Dosage: 120 MG, UNK

REACTIONS (16)
  - CONTUSION [None]
  - AORTIC STENOSIS [None]
  - HEARING IMPAIRED [None]
  - GOUT [None]
  - CARDIAC MURMUR [None]
  - THROMBOCYTOSIS [None]
  - IRON OVERLOAD [None]
  - MYELOFIBROSIS [None]
  - LACRIMATION INCREASED [None]
  - FATIGUE [None]
  - ECCHYMOSIS [None]
  - WHITE BLOOD CELL COUNT DECREASED [None]
  - NEUROPATHY PERIPHERAL [None]
  - DIARRHOEA [None]
  - SCROTAL SWELLING [None]
  - OEDEMA PERIPHERAL [None]
